FAERS Safety Report 8610045-3 (Version None)
Quarter: 2012Q3

REPORT INFORMATION
  Report Type: 
  Country: None (occurrence: None)
  Receive Date: 20120822
  Receipt Date: 20120705
  Transmission Date: 20120928
  Serious: No
  Sender: FDA-Public Use
  Company Number: US-009507513-1207USA002019

PATIENT

DRUGS (2)
  1. AZASITE [Suspect]
     Dosage: UNK
     Route: 047
  2. AZASITE [Suspect]
     Dosage: UNK

REACTIONS (3)
  - NO ADVERSE EVENT [None]
  - DRUG DOSE OMISSION [None]
  - PRODUCT QUALITY ISSUE [None]
